FAERS Safety Report 8178082-3 (Version None)
Quarter: 2012Q1

REPORT INFORMATION
  Report Type: 
  Country: None (occurrence: None)
  Receive Date: 20120301
  Receipt Date: 20120220
  Transmission Date: 20120608
  Serious: Yes (Hospitalization, Other)
  Sender: FDA-Public Use
  Company Number: US-BAXTER-2012BH003841

PATIENT
  Sex: Male

DRUGS (1)
  1. DIANEAL [Suspect]
     Indication: PERITONEAL DIALYSIS
     Route: 033
     Dates: start: 20110101, end: 20120201

REACTIONS (6)
  - PERITONITIS BACTERIAL [None]
  - CATHETER SITE INFECTION [None]
  - CLOSTRIDIAL INFECTION [None]
  - TREATMENT NONCOMPLIANCE [None]
  - DEVICE RELATED INFECTION [None]
  - MALAISE [None]
